FAERS Safety Report 9783728 (Version 1)
Quarter: 2013Q4

REPORT INFORMATION
  Report Type: Spontaneous
  Country: FR (occurrence: None)
  Receive Date: 20131223
  Receipt Date: 20131223
  Transmission Date: 20140711
  Serious: Yes (Hospitalization)
  Sender: FDA-Public Use
  Company Number: 1982402

PATIENT
  Age: 65 Year
  Sex: Male

DRUGS (4)
  1. CARBOPLATIN [Suspect]
     Indication: BLADDER CANCER
     Dosage: 500 MG MILLIGRAM (S), 1 DAY, INTRAVENOUS DRIP
     Route: 041
     Dates: start: 20100914
  2. GEMZAR [Concomitant]
  3. METHYLPREDNISOLONE MERCK [Concomitant]
  4. ZOPHREN [Concomitant]

REACTIONS (4)
  - Pollakiuria [None]
  - Rash [None]
  - Erythema [None]
  - Pruritus [None]
